FAERS Safety Report 26217665 (Version 1)
Quarter: 2025Q4

REPORT INFORMATION
  Report Type: Spontaneous
  Country: US (occurrence: US)
  Receive Date: 20251231
  Receipt Date: 20251231
  Transmission Date: 20260118
  Serious: Yes (Hospitalization)
  Sender: TEVA
  Company Number: US-TEVA-VS-3408057

PATIENT
  Age: 75 Year
  Sex: Male

DRUGS (5)
  1. WARFARIN [Suspect]
     Active Substance: WARFARIN
     Indication: Atrial fibrillation
     Route: 065
  2. MESALAMINE [Concomitant]
     Active Substance: MESALAMINE
     Indication: Colitis ulcerative
     Route: 065
  3. AMIODARONE [Concomitant]
     Active Substance: AMIODARONE
     Indication: Atrial fibrillation
     Route: 065
  4. RITUXIMAB [Suspect]
     Active Substance: RITUXIMAB
     Indication: Rheumatoid arthritis
     Route: 065
  5. OSELTAMIVIR [Concomitant]
     Active Substance: OSELTAMIVIR
     Indication: Influenza
     Route: 065

REACTIONS (2)
  - Pulmonary nocardiosis [Recovered/Resolved]
  - Anticoagulation drug level above therapeutic [Recovered/Resolved]
